FAERS Safety Report 4706209-1 (Version None)
Quarter: 2005Q2

REPORT INFORMATION
  Report Type: 
  Country: None (occurrence: None)
  Receive Date: 20050627
  Receipt Date: 20050322
  Transmission Date: 20051028
  Serious: No
  Sender: FDA-Public Use
  Company Number: IND-AE-05-SAN-015

PATIENT
  Age: 55 Year
  Sex: Female

DRUGS (1)
  1. SANCTURA [Suspect]
     Indication: HYPERTONIC BLADDER
     Dosage: 20MG-BID-ORAL
     Route: 048
     Dates: start: 20041222, end: 20050301

REACTIONS (2)
  - CONSTIPATION [None]
  - FAECALOMA [None]
